FAERS Safety Report 19764819 (Version 1)
Quarter: 2021Q3

REPORT INFORMATION
  Report Type: Spontaneous
  Country: FR (occurrence: FR)
  Receive Date: 20210831
  Receipt Date: 20210831
  Transmission Date: 20211014
  Serious: Yes (Hospitalization, Other)
  Sender: FDA-Public Use
  Company Number: FR-SUN PHARMACEUTICAL INDUSTRIES LTD-2021RR-309569

PATIENT
  Age: 53 Year
  Sex: Female

DRUGS (1)
  1. IBUPROFEN. [Suspect]
     Active Substance: IBUPROFEN
     Indication: SELF-MEDICATION
     Dosage: 400 MG
     Route: 065

REACTIONS (12)
  - Chills [Recovering/Resolving]
  - Influenza [Recovering/Resolving]
  - Hyperthermia [Recovering/Resolving]
  - Odynophagia [Recovering/Resolving]
  - Laryngeal dyspnoea [Recovering/Resolving]
  - Dysphonia [Recovering/Resolving]
  - Epiglottic oedema [Recovering/Resolving]
  - Ear pain [Recovering/Resolving]
  - Leukocytosis [Recovering/Resolving]
  - Epiglottitis [Unknown]
  - Infection susceptibility increased [Unknown]
  - Pasteurella infection [Unknown]
